FAERS Safety Report 7660639-7 (Version None)
Quarter: 2011Q3

REPORT INFORMATION
  Report Type: 
  Country: None (occurrence: None)
  Receive Date: 20110805
  Receipt Date: 20101118
  Transmission Date: 20111222
  Serious: No
  Sender: FDA-Public Use
  Company Number: US-ABBOTT-10P-163-0686914-00

PATIENT
  Sex: Male
  Weight: 67.192 kg

DRUGS (8)
  1. NIASPAN [Suspect]
     Indication: BLOOD TRIGLYCERIDES INCREASED
     Dates: start: 20101104
  2. PREDNISONE [Concomitant]
     Indication: CROHN'S DISEASE
  3. ASPIRIN [Concomitant]
     Indication: PRODUCT USED FOR UNKNOWN INDICATION
  4. LIPITOR [Concomitant]
     Indication: BLOOD TRIGLYCERIDES INCREASED
  5. CIMZIA [Concomitant]
     Indication: CROHN'S DISEASE
  6. VITAMIN D [Concomitant]
     Indication: PRODUCT USED FOR UNKNOWN INDICATION
  7. VITAMIN TAB [Concomitant]
     Indication: PRODUCT USED FOR UNKNOWN INDICATION
  8. FISH OIL [Concomitant]
     Indication: PRODUCT USED FOR UNKNOWN INDICATION

REACTIONS (4)
  - MEDICATION RESIDUE [None]
  - LIP SWELLING [None]
  - NASAL OEDEMA [None]
  - FLUSHING [None]
